FAERS Safety Report 11703426 (Version 1)
Quarter: 2015Q4

REPORT INFORMATION
  Report Type: Spontaneous
  Country: US (occurrence: US)
  Receive Date: 20151105
  Receipt Date: 20151105
  Transmission Date: 20160304
  Serious: No
  Sender: FDA-Public Use
  Company Number: US-ANACOR-2015ANA00089

PATIENT
  Age: 28 Year
  Sex: Female
  Weight: 81.63 kg

DRUGS (1)
  1. KERYDIN [Suspect]
     Active Substance: TAVABOROLE
     Indication: ONYCHOMYCOSIS
     Dosage: 1 GTT, 1X/DAY
     Route: 061
     Dates: start: 201505, end: 20150610

REACTIONS (3)
  - Application site erythema [Recovered/Resolved]
  - Application site vesicles [Recovered/Resolved]
  - Application site exfoliation [Recovered/Resolved]

NARRATIVE: CASE EVENT DATE: 201506
